FAERS Safety Report 6155861-5 (Version None)
Quarter: 2009Q2

REPORT INFORMATION
  Report Type: 
  Country: None (occurrence: None)
  Receive Date: 20090415
  Receipt Date: 20090406
  Transmission Date: 20091009
  Serious: Yes (Hospitalization)
  Sender: FDA-Public Use
  Company Number: US-ASTRAZENECA-2009AC01027

PATIENT
  Age: 9 Month
  Sex: Male
  Weight: 8.5 kg

DRUGS (1)
  1. BUPIVACAINE [Suspect]
     Indication: NERVE BLOCK
     Route: 053

REACTIONS (2)
  - ATRIAL FLUTTER [None]
  - BLOOD PRESSURE DECREASED [None]
